FAERS Safety Report 8011011-1 (Version None)
Quarter: 2011Q4

REPORT INFORMATION
  Report Type: 
  Country: None (occurrence: None)
  Receive Date: 20111228
  Receipt Date: 20111216
  Transmission Date: 20120403
  Serious: Yes (Other)
  Sender: FDA-Public Use
  Company Number: US-ELI_LILLY_AND_COMPANY-US201112006209

PATIENT
  Sex: Female

DRUGS (5)
  1. CYMBALTA [Suspect]
     Indication: OSTEOARTHRITIS
     Dosage: 30 MG, QD
     Dates: start: 20110901, end: 20111207
  2. LEVOTHYROXINE SODIUM [Concomitant]
  3. FLUOXETINE [Concomitant]
  4. ATIVAN [Concomitant]
     Indication: HYPERHIDROSIS
  5. DILTIAZEM HCL [Concomitant]
     Indication: MIGRAINE

REACTIONS (9)
  - HYPERTENSION [None]
  - SENSORY INTEGRATIVE DYSFUNCTION [None]
  - CRYING [None]
  - HYPERHIDROSIS [None]
  - PARAESTHESIA [None]
  - PAIN [None]
  - STOMATITIS [None]
  - DRUG WITHDRAWAL SYNDROME [None]
  - CONFUSIONAL STATE [None]
